FAERS Safety Report 5337752-2 (Version None)
Quarter: 2007Q1

REPORT INFORMATION
  Report Type: 
  Country: None (occurrence: None)
  Receive Date: 20070308
  Receipt Date: 20061204
  Transmission Date: 20070707
  Serious: No
  Sender: FDA-Public Use
  Company Number: 2006-BP-14078BP

PATIENT
  Age: 59 Year
  Sex: Female
  Weight: 92.99 kg

DRUGS (9)
  1. SPIRIVA [Suspect]
     Indication: ASTHMA
     Dosage: (18 MCG), IH
     Route: 055
     Dates: end: 20060901
  2. ACTIQ [Suspect]
     Indication: BACK PAIN
     Dosage: 800MCG QID (NR), BU
     Dates: start: 20030101
  3. DURAGESIC-100 [Suspect]
     Indication: BACK PAIN
     Dosage: 50 MG Q4-Q8H
  4. ZETIA [Concomitant]
  5. MELOXICAM [Concomitant]
  6. LYRICA [Concomitant]
  7. EFFEXOR [Concomitant]
  8. GLUCOVANCE [Concomitant]
  9. SINGULAIR [Concomitant]

REACTIONS (1)
  - DYSPNOEA [None]
